FAERS Safety Report 7874069-6 (Version None)
Quarter: 2011Q3

REPORT INFORMATION
  Report Type: 
  Country: None (occurrence: None)
  Receive Date: 20110926
  Receipt Date: 20100929
  Transmission Date: 20111222
  Serious: Yes (Other)
  Sender: FDA-Public Use
  Company Number: 693839

PATIENT
  Age: 68 Year
  Sex: Male
  Weight: 104.5 kg

DRUGS (2)
  1. TAXOTERE [Suspect]
     Indication: PROSTATE CANCER
     Dosage: PARENTERAL
     Route: 051
  2. CARBOPLATIN [Suspect]
     Indication: PROSTATE CANCER
     Dosage: INTRAVENOUS
     Route: 042

REACTIONS (1)
  - TREATMENT FAILURE [None]
